FAERS Safety Report 24760350 (Version 1)
Quarter: 2024Q4

REPORT INFORMATION
  Report Type: Spontaneous
  Country: JP (occurrence: JP)
  Receive Date: 20241220
  Receipt Date: 20241220
  Transmission Date: 20250114
  Serious: Yes (Other)
  Sender: BAYER HEALTHCARE PHARMACEUTICALS INC.
  Company Number: JP-BAYER-2024A179869

PATIENT
  Age: 8 Decade
  Sex: Male

DRUGS (2)
  1. XOFIGO [Suspect]
     Active Substance: RADIUM RA-223 DICHLORIDE
     Indication: Hormone-refractory prostate cancer
     Dosage: SLOW INTRAVENOUS ADMINISTRATION OF 55 KBQ/KG PER DOSE EVERY 4 WEEKS, A MAXIMUM OF 6 DOSES
     Route: 042
     Dates: start: 20240919, end: 20241201
  2. XOFIGO [Suspect]
     Active Substance: RADIUM RA-223 DICHLORIDE
     Indication: Metastases to bone

REACTIONS (3)
  - Hormone-refractory prostate cancer [Not Recovered/Not Resolved]
  - Metastases to lung [None]
  - Drug ineffective [None]
